FAERS Safety Report 6056764-7 (Version None)
Quarter: 2009Q1

REPORT INFORMATION
  Report Type: 
  Country: None (occurrence: None)
  Receive Date: 20090126
  Receipt Date: 20090126
  Transmission Date: 20090719
  Serious: No
  Sender: FDA-Public Use
  Company Number: None

PATIENT
  Age: 58 Year
  Sex: Female

DRUGS (2)
  1. OMNEPROZOLE 20MG KU 118 [Suspect]
     Indication: GASTROOESOPHAGEAL REFLUX DISEASE
     Dosage: 1 PER DAY
     Dates: start: 20081025, end: 20081125
  2. OMNEPROZOLE 20 MG APO 020 OTC [Suspect]
     Dates: start: 20081125, end: 20081225

REACTIONS (1)
  - DRUG DISPENSING ERROR [None]
